FAERS Safety Report 4342027-4 (Version None)
Quarter: 2004Q2

REPORT INFORMATION
  Report Type: 
  Country: None (occurrence: None)
  Receive Date: 20040415
  Receipt Date: 20040402
  Transmission Date: 20050107
  Serious: Yes (Other)
  Sender: FDA-Public Use
  Company Number: 200411632BCC

PATIENT
  Sex: Female
  Weight: 136.0791 kg

DRUGS (1)
  1. MIDOL [Suspect]
     Indication: DYSMENORRHOEA
     Dosage: QD, ORAL
     Route: 048

REACTIONS (4)
  - DYSARTHRIA [None]
  - DYSPEPSIA [None]
  - SENSATION OF HEAVINESS [None]
  - TONGUE DISORDER [None]
